FAERS Safety Report 4838955-3 (Version None)
Quarter: 2005Q4

REPORT INFORMATION
  Report Type: 
  Country: None (occurrence: None)
  Receive Date: 20051123
  Receipt Date: 20051123
  Transmission Date: 20060501
  Serious: Yes (Death)
  Sender: FDA-Public Use
  Company Number: None

PATIENT
  Age: 38 Year
  Sex: Male
  Weight: 99.7913 kg

DRUGS (2)
  1. PAXIL [Suspect]
     Indication: ANXIETY DISORDER
     Dosage: PO
     Route: 048
     Dates: start: 19960101, end: 19960229
  2. PAXIL [Suspect]
     Indication: DEPRESSION
     Dosage: PO
     Route: 048
     Dates: start: 19960101, end: 19960229

REACTIONS (3)
  - AGITATION [None]
  - COMPLETED SUICIDE [None]
  - INTENTIONAL OVERDOSE [None]
